FAERS Safety Report 17224919 (Version 2)
Quarter: 2020Q1

REPORT INFORMATION
  Report Type: Report from Study
  Country: NL (occurrence: NL)
  Receive Date: 20200102
  Receipt Date: 20200123
  Transmission Date: 20200409
  Serious: No
  Sender: FDA-Public Use
  Company Number: NL-EMD SERONO-9137777

PATIENT
  Age: 44 Year
  Sex: Female

DRUGS (2)
  1. MAVENCLAD [Suspect]
     Active Substance: CLADRIBINE
     Indication: RELAPSING-REMITTING MULTIPLE SCLEROSIS
     Dosage: FIRST YEAR THERAPY
     Route: 048
     Dates: start: 20190107
  2. MAVENCLAD [Suspect]
     Active Substance: CLADRIBINE
     Dosage: SECOND YEAR FIRST WEEK THERAPY
     Route: 048
     Dates: start: 20200106

REACTIONS (4)
  - Influenza [Not Recovered/Not Resolved]
  - Lymphocyte count decreased [Unknown]
  - Muscular weakness [Unknown]
  - Paraesthesia [Unknown]
